FAERS Safety Report 24894676 (Version 1)
Quarter: 2025Q1

REPORT INFORMATION
  Report Type: Spontaneous
  Country: US (occurrence: None)
  Receive Date: 20250127
  Receipt Date: 20250127
  Transmission Date: 20250409
  Serious: Yes (Other)
  Sender: FDA-CTU
  Company Number: None

PATIENT
  Age: 56 Year
  Sex: Female
  Weight: 109.35 kg

DRUGS (13)
  1. MOUNJARO [Suspect]
     Active Substance: TIRZEPATIDE
  2. ROSUVASTATIN [Concomitant]
     Active Substance: ROSUVASTATIN
  3. VALSARTAN [Concomitant]
     Active Substance: VALSARTAN
  4. MOUNJARO [Concomitant]
     Active Substance: TIRZEPATIDE
  5. FLONASE [Concomitant]
     Active Substance: FLUTICASONE PROPIONATE
  6. MELOXICAM [Suspect]
     Active Substance: MELOXICAM
  7. Tumeric with ginger [Concomitant]
  8. FISH OIL [Concomitant]
     Active Substance: FISH OIL
  9. VITAMIN C [Concomitant]
     Active Substance: ASCORBIC ACID
  10. VITAMINS [Concomitant]
     Active Substance: VITAMINS
  11. PROBIOTICS NOS [Concomitant]
     Active Substance: PROBIOTICS NOS
  12. METAMUCIL [Concomitant]
     Active Substance: PLANTAGO SEED
  13. VITAMIN D [Concomitant]
     Active Substance: VITAMIN D NOS

REACTIONS (1)
  - Insomnia [None]

NARRATIVE: CASE EVENT DATE: 20240801
